FAERS Safety Report 4453706-2 (Version None)
Quarter: 2004Q3

REPORT INFORMATION
  Report Type: 
  Country: None (occurrence: None)
  Receive Date: 20040920
  Receipt Date: 20040908
  Transmission Date: 20050211
  Serious: Yes (Hospitalization)
  Sender: FDA-Public Use
  Company Number: PHHO2004JP12752

PATIENT
  Age: 77 Year
  Sex: Female
  Weight: 50 kg

DRUGS (4)
  1. DIOVAN [Suspect]
     Dosage: NOT REPORTED
     Route: 048
     Dates: start: 20030324, end: 20031002
  2. BUFFERIN [Concomitant]
     Indication: THROMBOSIS
  3. DEPROMEL [Concomitant]
     Indication: DEPRESSION
  4. SIGMART [Concomitant]
     Indication: ANGINA PECTORIS

REACTIONS (3)
  - CHEST DISCOMFORT [None]
  - HYPERTENSIVE ENCEPHALOPATHY [None]
  - PALPITATIONS [None]
